FAERS Safety Report 5527771-5 (Version None)
Quarter: 2007Q4

REPORT INFORMATION
  Report Type: 
  Country: None (occurrence: None)
  Receive Date: 20071128
  Receipt Date: 20071127
  Transmission Date: 20080405
  Serious: Yes (Other)
  Sender: FDA-Public Use
  Company Number: A0691875A

PATIENT
  Age: 49 Year
  Sex: Female

DRUGS (1)
  1. ALLI [Suspect]
     Indication: DRUG USE FOR UNKNOWN INDICATION
     Route: 048

REACTIONS (5)
  - BLOOD GLUCOSE DECREASED [None]
  - DYSPEPSIA [None]
  - HEPATIC ENZYME INCREASED [None]
  - MALAISE [None]
  - PANCREATIC ENZYMES DECREASED [None]
